FAERS Safety Report 8303087-9 (Version None)
Quarter: 2012Q2

REPORT INFORMATION
  Report Type: 
  Country: None (occurrence: None)
  Receive Date: 20120423
  Receipt Date: 20120413
  Transmission Date: 20120825
  Serious: Yes (Other)
  Sender: FDA-Public Use
  Company Number: US-AMGEN-USASP2012019853

PATIENT
  Age: 84 Year
  Sex: Male
  Weight: 86.168 kg

DRUGS (4)
  1. VITAMIN C                          /00008001/ [Concomitant]
     Dosage: UNK
     Dates: start: 20120305, end: 20120324
  2. XGEVA [Suspect]
     Indication: PROSTATE CANCER
     Dosage: 120 MG, QMO
     Dates: start: 20120305, end: 20120402
  3. VITAMIN D [Concomitant]
     Dosage: UNK
     Dates: start: 20120305, end: 20120402
  4. CALCIUM [Concomitant]
     Dosage: UNK
     Dates: start: 20120305, end: 20120329

REACTIONS (3)
  - RASH GENERALISED [None]
  - INJECTION SITE RASH [None]
  - PRURITUS [None]
